FAERS Safety Report 12878222 (Version 1)
Quarter: 2016Q4

REPORT INFORMATION
  Report Type: Report from Study
  Country: CA (occurrence: CA)
  Receive Date: 20161024
  Receipt Date: 20161024
  Transmission Date: 20170207
  Serious: Yes (Hospitalization)
  Sender: FDA-Public Use
  Company Number: CA-TAKEDA-2016TUS018857

PATIENT
  Age: 65 Year
  Sex: Male

DRUGS (5)
  1. VITAMIN D AND A [Concomitant]
     Dosage: UNK
  2. PREDNISONE. [Concomitant]
     Active Substance: PREDNISONE
     Dosage: UNK
  3. VEDOLIZUMAB [Suspect]
     Active Substance: VEDOLIZUMAB
     Indication: COLITIS ULCERATIVE
     Dosage: 300 MG, UNK
     Route: 042
     Dates: start: 20151105
  4. VEDOLIZUMAB [Suspect]
     Active Substance: VEDOLIZUMAB
     Dosage: 300 MG, Q4WEEKS
     Route: 042
     Dates: start: 20160302
  5. MEZAVANT [Concomitant]
     Active Substance: MESALAMINE
     Dosage: UNK, TID

REACTIONS (5)
  - Loss of consciousness [Unknown]
  - Dehydration [Unknown]
  - Off label use [Unknown]
  - Blood pressure decreased [Unknown]
  - Infection [Unknown]

NARRATIVE: CASE EVENT DATE: 20160302
